FAERS Safety Report 23586822 (Version 1)
Quarter: 2024Q1

REPORT INFORMATION
  Report Type: Report from Study
  Country: US (occurrence: US)
  Receive Date: 20240301
  Receipt Date: 20240301
  Transmission Date: 20240410
  Serious: Yes (Hospitalization)
  Sender: FDA-Public Use
  Company Number: US-Eisai-EC-2024-158020

PATIENT
  Age: 72 Year
  Sex: Female

DRUGS (1)
  1. LENVIMA [Suspect]
     Active Substance: LENVATINIB
     Indication: Endometrial cancer
     Dosage: PATIENT IS TO RESUME REDUCED DOSE OF 10MG ON JAN/25/2024.
     Route: 048
     Dates: start: 2023, end: 20240104

REACTIONS (5)
  - Hypertension [Recovered/Resolved]
  - Transient ischaemic attack [Unknown]
  - Migraine [Unknown]
  - Extrasystoles [Unknown]
  - COVID-19 [Unknown]

NARRATIVE: CASE EVENT DATE: 20240101
